FAERS Safety Report 13200695 (Version 3)
Quarter: 2017Q1

REPORT INFORMATION
  Report Type: Spontaneous
  Country: JP (occurrence: JP)
  Receive Date: 20170209
  Receipt Date: 20170322
  Transmission Date: 20170428
  Serious: Yes (Death, Other)
  Sender: FDA-Public Use
  Company Number: PHJP2017JP004587

PATIENT
  Age: 60 Year
  Sex: Male
  Weight: 75.8 kg

DRUGS (12)
  1. HALCION [Concomitant]
     Active Substance: TRIAZOLAM
     Indication: PRODUCT USED FOR UNKNOWN INDICATION
     Dosage: 0.25 MG, QD (BEFORE BEDTIME)
     Route: 048
  2. MEVALOTIN [Concomitant]
     Active Substance: PRAVASTATIN SODIUM
     Indication: PRODUCT USED FOR UNKNOWN INDICATION
     Dosage: 5 OT, QD (AFTER MORNING MEAL)
     Route: 048
  3. ALLEGRA [Concomitant]
     Active Substance: FEXOFENADINE HYDROCHLORIDE
     Indication: PRODUCT USED FOR UNKNOWN INDICATION
     Dosage: 60 MG, BID (AFTER MORNING MEAL AND EVENING MEAL)
     Route: 048
  4. GILENYA [Suspect]
     Active Substance: FINGOLIMOD HYDROCHLORIDE
     Indication: MULTIPLE SCLEROSIS
     Dosage: 0.5 MG, QD (AFTER MORNING MEAL)
     Route: 048
     Dates: start: 20120613
  5. BLOPRESS [Suspect]
     Active Substance: CANDESARTAN CILEXETIL
     Indication: PRODUCT USED FOR UNKNOWN INDICATION
     Dosage: 4 MG, QD (AFTER MORNING MEAL)
     Route: 048
     Dates: start: 20161226
  6. SYMMETREL [Suspect]
     Active Substance: AMANTADINE HYDROCHLORIDE
     Indication: PRODUCT USED FOR UNKNOWN INDICATION
     Dosage: 50 MG, QD (AFTER MORNING MEAL)
     Route: 048
  7. KETAS [Concomitant]
     Active Substance: IBUDILAST
     Indication: PRODUCT USED FOR UNKNOWN INDICATION
     Dosage: 10 MG, TID (AFTER EACH MEAL)
     Route: 048
  8. NIVADIL [Suspect]
     Active Substance: NILVADIPINE
     Indication: PRODUCT USED FOR UNKNOWN INDICATION
     Dosage: 2 MG, BID (AFTER MORNING MEAL AND EVENING MEAL)
     Route: 048
     Dates: start: 20160627
  9. DEPAKENE [Concomitant]
     Active Substance: VALPROIC ACID
     Indication: PRODUCT USED FOR UNKNOWN INDICATION
     Dosage: 200 MG, QD (AFTER MORNING MEAL)
     Route: 048
  10. EDIROL [Concomitant]
     Active Substance: ELDECALCITOL
     Indication: PRODUCT USED FOR UNKNOWN INDICATION
     Dosage: 0.75 OT, AFTER MORNING MEAL
     Route: 048
  11. GOODMIN [Concomitant]
     Active Substance: BROTIZOLAM
     Indication: PRODUCT USED FOR UNKNOWN INDICATION
     Dosage: 0.25 MG, QD (BEFORE BEDTIME)
     Route: 048
  12. HOCHUEKKITO [Concomitant]
     Active Substance: HERBALS
     Indication: PRODUCT USED FOR UNKNOWN INDICATION
     Dosage: 2.5 G, TID (BEFORE EACH MEAL)
     Route: 065

REACTIONS (13)
  - Pyrexia [Fatal]
  - Infection [Unknown]
  - Cardiac failure [Fatal]
  - Blood pressure decreased [Unknown]
  - Monocyte count increased [Unknown]
  - Pallor [Unknown]
  - Asthenia [Unknown]
  - Decreased appetite [Unknown]
  - Neutrophil percentage increased [Unknown]
  - Lymphocyte count decreased [Unknown]
  - Blood pressure increased [Unknown]
  - Dehydration [Unknown]
  - Influenza [Unknown]

NARRATIVE: CASE EVENT DATE: 20170120
